FAERS Safety Report 5101900-X (Version None)
Quarter: 2006Q3

REPORT INFORMATION
  Report Type: 
  Country: None (occurrence: None)
  Receive Date: 20060907
  Receipt Date: 20060825
  Transmission Date: 20061208
  Serious: Yes (Other)
  Sender: FDA-Public Use
  Company Number: 2006SP000260

PATIENT
  Age: 58 Year
  Sex: Female

DRUGS (2)
  1. CLARITIN-D 24 HOUR [Suspect]
     Indication: DRUG USE FOR UNKNOWN INDICATION
     Dosage: 10 MG; PO
     Route: 048
     Dates: start: 20060801, end: 20060801
  2. NEXIUM [Concomitant]

REACTIONS (6)
  - EYE SWELLING [None]
  - FOREIGN BODY TRAUMA [None]
  - GASTROINTESTINAL DISORDER [None]
  - OESOPHAGITIS [None]
  - SWELLING [None]
  - THROAT IRRITATION [None]
